FAERS Safety Report 16840818 (Version 1)
Quarter: 2019Q3

REPORT INFORMATION
  Report Type: Spontaneous
  Country: AU (occurrence: AU)
  Receive Date: 20190923
  Receipt Date: 20190923
  Transmission Date: 20191005
  Serious: Yes (Other)
  Sender: FDA-Public Use
  Company Number: AU-TAKEDA-2019TUS045222

PATIENT
  Sex: Male

DRUGS (1)
  1. BRINTELLIX [Suspect]
     Active Substance: VORTIOXETINE HYDROBROMIDE
     Indication: DEPRESSION
     Dosage: 20 MILLIGRAM, QD
     Route: 065
     Dates: start: 201805, end: 201812

REACTIONS (4)
  - Condition aggravated [Unknown]
  - Atrial fibrillation [Not Recovered/Not Resolved]
  - Palpitations [Unknown]
  - Anxiety [Unknown]
